FAERS Safety Report 7454963-0 (Version None)
Quarter: 2011Q2

REPORT INFORMATION
  Report Type: 
  Country: None (occurrence: None)
  Receive Date: 20110503
  Receipt Date: 20110501
  Transmission Date: 20111010
  Serious: Yes (Hospitalization, Other)
  Sender: FDA-Public Use
  Company Number: DE-BRISTOL-MYERS SQUIBB COMPANY-15553134

PATIENT
  Age: 16 Year
  Sex: Female
  Weight: 50 kg

DRUGS (4)
  1. TAVOR [Suspect]
     Dosage: 1DF=1TABLET
  2. ABILIFY [Suspect]
     Dates: start: 20110215
  3. PERAZINE [Suspect]
  4. PIPAMPERONE [Suspect]
     Dosage: 3 TAB(120MG)

REACTIONS (6)
  - SOMNOLENCE [None]
  - FATIGUE [None]
  - DYSARTHRIA [None]
  - TREMOR [None]
  - MYDRIASIS [None]
  - SUICIDE ATTEMPT [None]
